FAERS Safety Report 13738447 (Version 1)
Quarter: 2017Q3

REPORT INFORMATION
  Report Type: Spontaneous
  Country: US (occurrence: US)
  Receive Date: 20170710
  Receipt Date: 20170710
  Transmission Date: 20171127
  Serious: Yes (Other)
  Sender: FDA-Public Use
  Company Number: US-SAOL THERAPEUTICS-2016SAO00881

PATIENT
  Age: 63 Year
  Sex: Female

DRUGS (3)
  1. COMPOUNDED BACLOFEN [Suspect]
     Active Substance: BACLOFEN
     Indication: SPINAL PAIN
     Dosage: 386.52 ?G, \DAY
     Route: 037
     Dates: start: 20160909
  2. BUPIVICAINE [Suspect]
     Active Substance: BUPIVACAINE
     Dosage: 17.052 MG, \DAY
     Route: 037
     Dates: start: 20160909
  3. DILAUDID [Suspect]
     Active Substance: HYDROMORPHONE HYDROCHLORIDE
     Dosage: 4.547 MG, \DAY
     Route: 037
     Dates: start: 20160909

REACTIONS (5)
  - Device failure [Recovered/Resolved]
  - Drug withdrawal syndrome [Recovered/Resolved]
  - Pain [Recovered/Resolved]
  - Influenza [Recovered/Resolved]
  - Off label use of device [Unknown]

NARRATIVE: CASE EVENT DATE: 20161002
